FAERS Safety Report 15145415 (Version 2)
Quarter: 2018Q3

REPORT INFORMATION
  Report Type: Spontaneous
  Country: US (occurrence: US)
  Receive Date: 20180713
  Receipt Date: 20180831
  Transmission Date: 20181010
  Serious: No
  Sender: FDA-Public Use
  Company Number: US-INTERCEPT-PMOCA2018000796

PATIENT

DRUGS (3)
  1. TRAMADOL. [Suspect]
     Active Substance: TRAMADOL
  2. OCALIVA [Suspect]
     Active Substance: OBETICHOLIC ACID
     Indication: PRIMARY BILIARY CHOLANGITIS
     Dosage: 5 MG, QD
     Route: 048
     Dates: start: 20180511
  3. CELEBREX [Interacting]
     Active Substance: CELECOXIB

REACTIONS (15)
  - Joint swelling [Unknown]
  - Pruritus [Unknown]
  - Oropharyngeal pain [Unknown]
  - Arthralgia [Unknown]
  - Hypersensitivity [Unknown]
  - Muscular weakness [Unknown]
  - Dizziness [Unknown]
  - Cystitis [Unknown]
  - Anal incontinence [Unknown]
  - Mood altered [Unknown]
  - Crying [Unknown]
  - Skin irritation [Unknown]
  - Fall [Recovered/Resolved]
  - Peripheral swelling [Unknown]
  - Fatigue [Unknown]

NARRATIVE: CASE EVENT DATE: 20180512
